FAERS Safety Report 7907243-0 (Version None)
Quarter: 2011Q4

REPORT INFORMATION
  Report Type: 
  Country: None (occurrence: None)
  Receive Date: 20111110
  Receipt Date: 20110909
  Transmission Date: 20120403
  Serious: No
  Sender: FDA-Public Use
  Company Number: US-BAYER-2011-089607

PATIENT
  Age: 64 Year
  Sex: Female
  Weight: 109 kg

DRUGS (7)
  1. ATENOLOL [Concomitant]
  2. VITAMIN TAB [Concomitant]
  3. TRAMADOL HCL [Concomitant]
  4. NORTRIPTYLINE HCL [Concomitant]
  5. TYLENOL-500 [Concomitant]
  6. ASPIRIN [Concomitant]
  7. ALEVE (CAPLET) [Suspect]
     Indication: ARTHRITIS
     Dosage: UNK UNK, QD
     Route: 048
     Dates: start: 20110908, end: 20110908

REACTIONS (4)
  - NAUSEA [None]
  - TREMOR [None]
  - DIARRHOEA [None]
  - HEADACHE [None]
